FAERS Safety Report 7108122-1 (Version None)
Quarter: 2010Q4

REPORT INFORMATION
  Report Type: 
  Country: None (occurrence: None)
  Receive Date: 20101110
  Receipt Date: 20101103
  Transmission Date: 20110411
  Serious: Yes (Death, Hospitalization)
  Sender: FDA-Public Use
  Company Number: 2010SP040149

PATIENT
  Age: 35 Year
  Sex: Female
  Weight: 100.2449 kg

DRUGS (3)
  1. NUVARING [Suspect]
     Indication: CONTRACEPTION
     Dates: start: 20081001
  2. AMBIEN [Concomitant]
  3. ZOLOFT [Concomitant]

REACTIONS (9)
  - ANEURYSM [None]
  - BRAIN DEATH [None]
  - CEREBRAL HAEMORRHAGE [None]
  - CEREBRAL VENOUS THROMBOSIS [None]
  - HEADACHE [None]
  - INTRACRANIAL PRESSURE INCREASED [None]
  - LEUKOCYTOSIS [None]
  - PRESYNCOPE [None]
  - SUBARACHNOID HAEMORRHAGE [None]
